FAERS Safety Report 6580121-8 (Version None)
Quarter: 2010Q1

REPORT INFORMATION
  Report Type: 
  Country: None (occurrence: None)
  Receive Date: 20100212
  Receipt Date: 20100202
  Transmission Date: 20100710
  Serious: Yes (Hospitalization)
  Sender: FDA-Public Use
  Company Number: GB-PFIZER INC-2009221852

PATIENT
  Age: 76 Year
  Sex: Female

DRUGS (6)
  1. LIPITOR [Suspect]
     Indication: BLOOD CHOLESTEROL INCREASED
     Dosage: 40 MG, 1X/DAY
     Route: 048
     Dates: end: 20090507
  2. PIOGLITAZONE [Suspect]
     Indication: DIABETES MELLITUS
     Dosage: 30 MG, 1X/DAY
     Route: 048
     Dates: start: 20050701, end: 20090507
  3. AMLODIPINE [Concomitant]
     Indication: HYPERTENSION
     Dosage: 10 MG, 1X/DAY
     Route: 048
  4. ASPIRIN [Concomitant]
     Indication: PROPHYLAXIS
     Dosage: 75 MG, 1X/DAY
     Route: 048
  5. DOXAZOSIN [Concomitant]
     Indication: HYPERTENSION
     Dosage: 3 MG, 1X/DAY
     Route: 048
  6. FUROSEMIDE [Concomitant]
     Indication: OEDEMA
     Dosage: 120 MG, 1X/DAY
     Route: 048

REACTIONS (3)
  - JAUNDICE [None]
  - LIVER FUNCTION TEST ABNORMAL [None]
  - PRURITUS [None]
